FAERS Safety Report 7310223-X (Version None)
Quarter: 2011Q1

REPORT INFORMATION
  Report Type: 
  Country: None (occurrence: None)
  Receive Date: 20110224
  Receipt Date: 20110221
  Transmission Date: 20110831
  Serious: Yes (Hospitalization, Other)
  Sender: FDA-Public Use
  Company Number: JP-EISAI INC-E2020-06240-CLI-JP

PATIENT
  Sex: Male
  Weight: 60.9 kg

DRUGS (3)
  1. LENDORMIN [Concomitant]
     Route: 048
     Dates: start: 20090819, end: 20100228
  2. ARICEPT [Suspect]
     Route: 048
     Dates: start: 20080607, end: 20090930
  3. ARICEPT [Suspect]
     Route: 048
     Dates: start: 20091001

REACTIONS (2)
  - URINARY RETENTION [None]
  - HYDRONEPHROSIS [None]
